FAERS Safety Report 10418316 (Version 1)
Quarter: 2014Q2

REPORT INFORMATION
  Report Type: Spontaneous
  Country: US (occurrence: None)
  Receive Date: 20140609
  Receipt Date: 20140609
  Transmission Date: 20141212
  Serious: No
  Sender: FDA-Public Use
  Company Number: 2014TUS002473

PATIENT
  Age: 58 Year
  Sex: Male

DRUGS (6)
  1. BRINTELLIX [Suspect]
     Indication: MAJOR DEPRESSION
     Route: 048
     Dates: start: 20140225
  2. DOXAZOSIN [Concomitant]
  3. ABILIFY (ARIPIPRAZOLE) [Concomitant]
  4. ADDERALL (AMFETAMINE ASPARTATE, AMFETAMINE SULFATE, DEXAMFETAMINE SACCHARATE, DEXAMFETAMINE SULFATE) [Concomitant]
  5. TRAZODONE [Concomitant]
  6. GABAPENTIN [Concomitant]

REACTIONS (1)
  - Urinary hesitation [None]
